FAERS Safety Report 4809069-3 (Version None)
Quarter: 2005Q4

REPORT INFORMATION
  Report Type: 
  Country: None (occurrence: None)
  Receive Date: 20051021
  Receipt Date: 20040624
  Transmission Date: 20060501
  Serious: Yes (Hospitalization)
  Sender: FDA-Public Use
  Company Number: GBS040615142

PATIENT
  Age: 38 Year
  Sex: Male

DRUGS (2)
  1. OLANZAPINE [Suspect]
     Indication: PARANOIA
     Dosage: 15 MG
     Dates: start: 20040401
  2. CITALOPRAM [Concomitant]

REACTIONS (1)
  - DEEP VEIN THROMBOSIS [None]
